FAERS Safety Report 22172981 (Version 1)
Quarter: 2023Q2

REPORT INFORMATION
  Report Type: Spontaneous
  Country: US (occurrence: US)
  Receive Date: 20230404
  Receipt Date: 20230404
  Transmission Date: 20230721
  Serious: No
  Sender: FDA-Public Use
  Company Number: US-BAYER-2023A040567

PATIENT
  Age: 45 Year
  Sex: Female

DRUGS (1)
  1. ESTRADIOL [Suspect]
     Active Substance: ESTRADIOL
     Dosage: 0.05 MG, QD
     Route: 062

REACTIONS (2)
  - Product dose omission issue [None]
  - Device adhesion issue [None]
